FAERS Safety Report 16543265 (Version 1)
Quarter: 2019Q3

REPORT INFORMATION
  Report Type: Spontaneous
  Country: JP (occurrence: JP)
  Receive Date: 20190709
  Receipt Date: 20190709
  Transmission Date: 20191004
  Serious: Yes (Other)
  Sender: FDA-Public Use
  Company Number: JP-GLAXOSMITHKLINE-JP2019JPN122012

PATIENT
  Age: 72 Year
  Sex: Female

DRUGS (3)
  1. AMBROXOL HYDROCHLORIDE [Concomitant]
     Active Substance: AMBROXOL HYDROCHLORIDE
     Dosage: UNK
  2. ANORO ELLIPTA [Suspect]
     Active Substance: UMECLIDINIUM BROMIDE\VILANTEROL TRIFENATATE
     Dosage: UNK
     Route: 055
     Dates: start: 201812
  3. PREDNISOLONE TABLETS [Concomitant]
     Active Substance: PREDNISOLONE
     Dosage: 4 DF, QD

REACTIONS (3)
  - Rhinorrhoea [Unknown]
  - Treatment noncompliance [Unknown]
  - Angina pectoris [Unknown]
